FAERS Safety Report 8488466-1 (Version None)
Quarter: 2012Q3

REPORT INFORMATION
  Report Type: 
  Country: None (occurrence: None)
  Receive Date: 20120705
  Receipt Date: 20120621
  Transmission Date: 20120928
  Serious: Yes (Hospitalization, Other)
  Sender: FDA-Public Use
  Company Number: CH-CELGENEUS-151-50794-12062928

PATIENT
  Age: 70 Year
  Sex: Male

DRUGS (8)
  1. HYDROXYUREA [Concomitant]
     Dosage: 1500 MILLIGRAM
     Route: 048
     Dates: start: 20111201
  2. BACTRIM [Concomitant]
     Indication: PROPHYLAXIS
     Route: 048
  3. ALLOPURINOL [Concomitant]
     Indication: PROPHYLAXIS
     Dosage: 300 MILLIGRAM
     Route: 048
  4. NOXAFIL [Concomitant]
     Indication: PROPHYLAXIS
     Dosage: 600 MILLIGRAM
     Route: 048
  5. LEUCOVORIN CALCIUM [Concomitant]
     Indication: PROPHYLAXIS
     Route: 048
  6. VALTREX [Concomitant]
     Indication: PROPHYLAXIS
     Dosage: 1000 MILLIGRAM
     Route: 048
  7. VIDAZA [Suspect]
     Indication: MYELOID LEUKAEMIA
     Route: 041
     Dates: start: 20110815, end: 20120501
  8. BACTRIM [Concomitant]
     Dosage: .4286 DOSAGE FORMS
     Route: 048

REACTIONS (4)
  - LOBAR PNEUMONIA [None]
  - OXYGEN SATURATION DECREASED [None]
  - AGRANULOCYTOSIS [None]
  - LUNG INFILTRATION [None]
